FAERS Safety Report 6055543-4 (Version None)
Quarter: 2009Q1

REPORT INFORMATION
  Report Type: 
  Country: None (occurrence: None)
  Receive Date: 20090128
  Receipt Date: 20090119
  Transmission Date: 20090719
  Serious: Yes (Life-Threatening, Hospitalization)
  Sender: FDA-Public Use
  Company Number: B0554847A

PATIENT
  Age: 58 Year
  Sex: Male

DRUGS (9)
  1. FORTUM [Suspect]
     Indication: FEBRILE NEUTROPENIA
     Route: 042
     Dates: start: 20081023
  2. VANCOMYCIN [Concomitant]
     Route: 065
     Dates: start: 20081023
  3. FLAGYL [Concomitant]
     Route: 065
     Dates: start: 20081023
  4. BUSULPHAN [Concomitant]
     Indication: BONE MARROW TRANSPLANT
     Route: 065
     Dates: start: 20081021
  5. FLUDARA [Concomitant]
     Indication: BONE MARROW TRANSPLANT
     Route: 065
     Dates: start: 20081021
  6. TAZOCILLINE [Concomitant]
     Dates: end: 20081023
  7. GENTAMICIN [Concomitant]
     Dates: end: 20081023
  8. HYDREA [Concomitant]
     Indication: THROMBOCYTOPENIA
  9. EXJADE [Concomitant]

REACTIONS (8)
  - BLOOD CREATININE INCREASED [None]
  - HYPERBILIRUBINAEMIA [None]
  - HYPERNATRAEMIA [None]
  - INTERSTITIAL LUNG DISEASE [None]
  - MURPHY'S SIGN POSITIVE [None]
  - NEUROLOGICAL DECOMPENSATION [None]
  - RESPIRATORY DISTRESS [None]
  - VENOOCCLUSIVE DISEASE [None]
